FAERS Safety Report 8543225 (Version 2)
Quarter: 2012Q4

REPORT INFORMATION
  Report Type: 
  Country: US (occurrence: US)
  Receive Date: 20120502
  Receipt Date: 20121019
  Transmission Date: 20130627
  Serious: Yes (Hospitalization, Other)
  Sender: FDA-Public Use
  Company Number: US-ELI_LILLY_AND_COMPANY-US201204008225

PATIENT
  Age: 57 None
  Sex: Female

DRUGS (1)
  1. FORTEO [Suspect]
     Indication: OSTEOPOROSIS
     Dosage: 20 u, qd
     Dates: start: 20120321

REACTIONS (9)
  - Transfusion [Unknown]
  - Malaise [Unknown]
  - Fall [Unknown]
  - Spinal fracture [Unknown]
  - Fall [Unknown]
  - Pelvic fracture [Unknown]
  - Injection [Unknown]
  - Nasopharyngitis [Not Recovered/Not Resolved]
  - Drug dose omission [Unknown]
